FAERS Safety Report 5095896-7 (Version None)
Quarter: 2006Q3

REPORT INFORMATION
  Report Type: 
  Country: None (occurrence: None)
  Receive Date: 20060905
  Receipt Date: 20060901
  Transmission Date: 20061208
  Serious: Yes (Other)
  Sender: FDA-Public Use
  Company Number: JP-BAYER-200611016BYL

PATIENT
  Age: 77 Year
  Sex: Male

DRUGS (2)
  1. CIPROFLOXACIN [Suspect]
     Indication: DIVERTICULITIS
     Dosage: TOTAL DAILY DOSE: 300 MG  UNIT DOSE: 300 MG
     Route: 042
     Dates: start: 20060812, end: 20060812
  2. CIPROFLOXACIN [Suspect]
     Dosage: TOTAL DAILY DOSE: 600 MG  UNIT DOSE: 300 MG
     Route: 042
     Dates: start: 20060813, end: 20060813

REACTIONS (5)
  - ATRIAL FIBRILLATION [None]
  - LABORATORY TEST ABNORMAL [None]
  - PULMONARY OEDEMA [None]
  - PYREXIA [None]
  - RASH [None]
